FAERS Safety Report 5918572-4 (Version None)
Quarter: 2008Q4

REPORT INFORMATION
  Report Type: 
  Country: None (occurrence: None)
  Receive Date: 20081010
  Receipt Date: 20081002
  Transmission Date: 20090506
  Serious: Yes (Death, Hospitalization)
  Sender: FDA-Public Use
  Company Number: WAES 0510CHE00016

PATIENT
  Age: 69 Year
  Sex: Female

DRUGS (11)
  1. CAP VORINOSTAT [Suspect]
     Indication: MYCOSIS FUNGOIDES
     Dosage: 200MG/DAILY, PO
     Route: 048
     Dates: start: 20050921, end: 20051102
  2. TAB BEXAROTENE [Suspect]
     Indication: MYCOSIS FUNGOIDES
     Dosage: 225 MG/DAILY, PO
     Route: 048
     Dates: start: 20050921, end: 20051102
  3. MORPHINE SULFATE [Suspect]
     Indication: MYCOSIS FUNGOIDES
     Dosage: PO
     Route: 048
  4. IBUPROFEN TABLETS [Concomitant]
  5. OXAZEPAM [Concomitant]
  6. POVIDONE IODINE [Concomitant]
  7. SIMVASTATIN [Concomitant]
  8. TRAMADOL HCL [Concomitant]
  9. ACETAMINOPHEN [Concomitant]
  10. CETRIZINE HYDROCHLORIDE [Concomitant]
  11. GLIMEPIRIDE [Concomitant]

REACTIONS (12)
  - C-REACTIVE PROTEIN INCREASED [None]
  - CANCER PAIN [None]
  - DEPRESSED LEVEL OF CONSCIOUSNESS [None]
  - DISEASE PROGRESSION [None]
  - GENERAL PHYSICAL HEALTH DETERIORATION [None]
  - HEPATIC FAILURE [None]
  - MYCOSIS FUNGOIDES [None]
  - NEOPLASM PROGRESSION [None]
  - NO THERAPEUTIC RESPONSE [None]
  - ORGAN FAILURE [None]
  - SOMNOLENCE [None]
  - SUPERINFECTION BACTERIAL [None]
